FAERS Safety Report 6362126-5 (Version None)
Quarter: 2009Q3

REPORT INFORMATION
  Report Type: 
  Country: None (occurrence: None)
  Receive Date: 20090918
  Receipt Date: 20090908
  Transmission Date: 20100115
  Serious: Yes (Other)
  Sender: FDA-Public Use
  Company Number: GB-ABBOTT-09P-167-0595964-00

PATIENT
  Age: 40 Year
  Sex: Male

DRUGS (11)
  1. NORVIR [Suspect]
     Indication: PATHOGEN RESISTANCE
     Dates: start: 20070416
  2. RALTEGRAVIR [Suspect]
     Indication: HIV INFECTION
     Route: 048
     Dates: start: 20070416
  3. DARUNAVIR [Suspect]
     Indication: HIV INFECTION
     Dates: start: 20070416
  4. AZITHROMYCIN [Concomitant]
     Indication: HIV INFECTION
     Dates: start: 20020101
  5. AZITHROMYCIN [Concomitant]
     Indication: PATHOGEN RESISTANCE
  6. DAPSONE [Concomitant]
     Indication: HIV INFECTION
     Dates: start: 20020101
  7. DAPSONE [Concomitant]
     Indication: PATHOGEN RESISTANCE
  8. TENOFOVIR DISOPROXIL FUMARATE [Concomitant]
     Indication: HIV INFECTION
     Dates: start: 20070416
  9. TENOFOVIR DISOPROXIL FUMARATE [Concomitant]
     Indication: PATHOGEN RESISTANCE
  10. COMBIVIR [Concomitant]
     Indication: HIV INFECTION
     Dates: start: 20070416
  11. COMBIVIR [Concomitant]
     Indication: PATHOGEN RESISTANCE

REACTIONS (3)
  - ERYTHEMA [None]
  - LOCAL SWELLING [None]
  - PAIN [None]
